FAERS Safety Report 6918087-0 (Version None)
Quarter: 2010Q3

REPORT INFORMATION
  Report Type: 
  Country: None (occurrence: None)
  Receive Date: 20100806
  Receipt Date: 20100722
  Transmission Date: 20110219
  Serious: Yes (Hospitalization)
  Sender: FDA-Public Use
  Company Number: ACO_01060_2010

PATIENT
  Age: 30 Year
  Sex: Female

DRUGS (3)
  1. TIZANIDINE HYDROCHLORIDE [Suspect]
     Indication: DYSTONIA
     Dosage: (92 MG 1X, [ONCE/SINGLE] ORAL)
     Route: 048
  2. ANTIDEPRESSANTS [Concomitant]
  3. HYPNOTICS AND SEDATIVES [Concomitant]

REACTIONS (5)
  - ALTERED STATE OF CONSCIOUSNESS [None]
  - BLOOD PRESSURE DECREASED [None]
  - BRADYCARDIA [None]
  - CARBON DIOXIDE INCREASED [None]
  - MULTIPLE DRUG OVERDOSE INTENTIONAL [None]
